FAERS Safety Report 17670955 (Version 1)
Quarter: 2020Q2

REPORT INFORMATION
  Report Type: Spontaneous
  Country: FR (occurrence: FR)
  Receive Date: 20200415
  Receipt Date: 20200415
  Transmission Date: 20200713
  Serious: Yes (Other)
  Sender: FDA-Public Use
  Company Number: FR-ASTRAZENECA-2020SE48572

PATIENT
  Age: 25 Year
  Sex: Male

DRUGS (2)
  1. AMOXICILLINE [Concomitant]
     Active Substance: AMOXICILLIN
  2. ESOMEPRAZOLE. [Suspect]
     Active Substance: ESOMEPRAZOLE MAGNESIUM
     Indication: PROPHYLAXIS
     Dosage: 20.0MG ONCE/SINGLE ADMINISTRATION
     Route: 048
     Dates: start: 20191107, end: 20191107

REACTIONS (7)
  - Tremor [Recovered/Resolved]
  - Diarrhoea [Recovered/Resolved]
  - Laryngeal discomfort [Recovered/Resolved]
  - Laryngeal dyspnoea [Recovered/Resolved]
  - Abdominal pain [Recovered/Resolved]
  - Rash macular [Recovered/Resolved]
  - Erythema [Recovered/Resolved]

NARRATIVE: CASE EVENT DATE: 20191107
